FAERS Safety Report 8457133-2 (Version None)
Quarter: 2012Q2

REPORT INFORMATION
  Report Type: 
  Country: None (occurrence: None)
  Receive Date: 20120615
  Receipt Date: 20120604
  Transmission Date: 20120825
  Serious: Yes (Life-Threatening)
  Sender: FDA-Public Use
  Company Number: 2012P1038500

PATIENT
  Age: 2 Month
  Weight: 3.8 kg

DRUGS (2)
  1. FENTANYL CITRATE [Suspect]
     Indication: SEDATION
     Dosage: 0.5 UG/KG/X1, 1 UG/KG;X1
  2. MIDAZOLAM [Concomitant]

REACTIONS (3)
  - OXYGEN SATURATION DECREASED [None]
  - MUSCLE RIGIDITY [None]
  - RESPIRATORY DISORDER [None]
